FAERS Safety Report 4868829-3 (Version None)
Quarter: 2005Q4

REPORT INFORMATION
  Report Type: 
  Country: None (occurrence: None)
  Receive Date: 20051223
  Receipt Date: 20051215
  Transmission Date: 20060501
  Serious: Yes (Death, Other)
  Sender: FDA-Public Use
  Company Number: 2005159521

PATIENT
  Age: 71 Year
  Sex: Male
  Weight: 75 kg

DRUGS (8)
  1. CELEBREX [Suspect]
     Indication: OSTEOARTHRITIS
     Dosage: 200 DAILY ORAL
     Route: 048
     Dates: start: 20041001, end: 20051101
  2. CELEBREX [Suspect]
     Indication: PAIN
     Dosage: 200 DAILY ORAL
     Route: 048
     Dates: start: 20041001, end: 20051101
  3. CHLORAMBUCIL [Concomitant]
  4. TIAPRIDE [Concomitant]
  5. LORAZEPAM [Concomitant]
  6. ZOLPIDEM TARTRATE [Concomitant]
  7. MIANSERIN HYDROCHLORIDE [Concomitant]
  8. ESOMEPRAZOLE MAGNESIUM [Concomitant]

REACTIONS (4)
  - GASTROINTESTINAL HAEMORRHAGE [None]
  - MALAISE [None]
  - MYOCARDIAL INFARCTION [None]
  - SUDDEN DEATH [None]
